FAERS Safety Report 6263493-3 (Version None)
Quarter: 2009Q3

REPORT INFORMATION
  Report Type: 
  Country: None (occurrence: None)
  Receive Date: 20090710
  Receipt Date: 20090413
  Transmission Date: 20100115
  Serious: No
  Sender: FDA-Public Use
  Company Number: A0773240A

PATIENT
  Age: 77 Year
  Sex: Female

DRUGS (12)
  1. TYKERB [Suspect]
     Indication: BREAST CANCER
     Dosage: 4TAB PER DAY
     Route: 048
     Dates: start: 20090301
  2. CHEMOTHERAPY [Suspect]
     Indication: BREAST CANCER
     Route: 042
     Dates: start: 20090305
  3. FUROSEMIDE [Suspect]
     Dosage: 20MG PER DAY
     Route: 048
     Dates: start: 20081201, end: 20090312
  4. VERAPAMIL [Suspect]
     Dosage: 120MG PER DAY
     Route: 048
     Dates: start: 20080101, end: 20090312
  5. NORTRIPTYLINE HCL [Concomitant]
  6. UNKNOWN MEDICATION [Concomitant]
  7. ASPIRIN [Concomitant]
     Dosage: 81MG TWICE PER DAY
  8. MELOXICAM [Concomitant]
  9. DARVOCET [Concomitant]
  10. LOVASTATIN [Concomitant]
  11. FISH OIL [Concomitant]
  12. KLOR-CON [Concomitant]

REACTIONS (4)
  - CHROMATURIA [None]
  - DIZZINESS [None]
  - MUSCULAR WEAKNESS [None]
  - WEIGHT DECREASED [None]
